FAERS Safety Report 4864347-7 (Version None)
Quarter: 2005Q4

REPORT INFORMATION
  Report Type: 
  Country: None (occurrence: None)
  Receive Date: 20051222
  Receipt Date: 20020730
  Transmission Date: 20060501
  Serious: Yes (Hospitalization, Disabling)
  Sender: FDA-Public Use
  Company Number: US-MERCK-0207USA02813

PATIENT
  Age: 44 Year
  Sex: Female
  Weight: 99 kg

DRUGS (1)
  1. VIOXX [Suspect]
     Route: 048

REACTIONS (7)
  - ARTHROPATHY [None]
  - BLOOD URINE PRESENT [None]
  - CALCULUS URETERIC [None]
  - CEREBROVASCULAR ACCIDENT [None]
  - DIABETES MELLITUS [None]
  - OBESITY [None]
  - OESTROGEN DEFICIENCY [None]
